FAERS Safety Report 5842624-0 (Version None)
Quarter: 2008Q3

REPORT INFORMATION
  Report Type: 
  Country: None (occurrence: None)
  Receive Date: 20080812
  Receipt Date: 20080731
  Transmission Date: 20090109
  Serious: Yes (Other)
  Sender: FDA-Public Use
  Company Number: US-PFIZER INC-2008065160

PATIENT
  Sex: Male
  Weight: 70.3 kg

DRUGS (9)
  1. CHANTIX [Suspect]
     Indication: SMOKING CESSATION THERAPY
     Dosage: FREQ:EVERY DAY
     Route: 048
     Dates: start: 20080715, end: 20080729
  2. DEPAKOTE [Concomitant]
  3. CLONAZEPAM [Concomitant]
  4. ZYPREXA [Concomitant]
  5. COGENTIN [Concomitant]
  6. ATENOLOL [Concomitant]
  7. PRILOSEC [Concomitant]
  8. ACETYLSALICYLIC ACID SRT [Concomitant]
  9. ALL OTHER THERAPEUTIC PRODUCTS [Concomitant]

REACTIONS (3)
  - BIPOLAR DISORDER [None]
  - DEPRESSION [None]
  - SCHIZOPHRENIA [None]
